FAERS Safety Report 19352274 (Version 1)
Quarter: 2021Q2

REPORT INFORMATION
  Report Type: Report from Study
  Country: US (occurrence: US)
  Receive Date: 20210531
  Receipt Date: 20210531
  Transmission Date: 20210717
  Serious: Yes (Hospitalization, Other)
  Sender: FDA-Public Use
  Company Number: US-JNJFOC-A-US2017-152634

PATIENT
  Age: 69 Year
  Sex: Female
  Weight: 72.56 kg

DRUGS (4)
  1. MACITENTAN [Suspect]
     Active Substance: MACITENTAN
     Indication: PULMONARY HYPERTENSION
     Dosage: 10 MG, QD
     Route: 048
  2. MACITENTAN [Suspect]
     Active Substance: MACITENTAN
     Route: 048
  3. XARELTO [Concomitant]
     Active Substance: RIVAROXABAN
  4. METHOTREXATE. [Suspect]
     Active Substance: METHOTREXATE
     Indication: PRODUCT USED FOR UNKNOWN INDICATION
     Dosage: 2.5 MG, UNK
     Route: 065

REACTIONS (15)
  - Colon operation [Unknown]
  - Insomnia [Unknown]
  - Vertigo [Unknown]
  - Pruritus [Unknown]
  - Colon cancer [Unknown]
  - Dyspepsia [Unknown]
  - Malaise [Unknown]
  - Headache [Recovered/Resolved]
  - Tumour excision [Unknown]
  - Biopsy [Unknown]
  - Lymphadenopathy [Unknown]
  - Sluggishness [Unknown]
  - Fatigue [Unknown]
  - Infusion [Unknown]
  - Dyspnoea [Unknown]

NARRATIVE: CASE EVENT DATE: 20180722
